FAERS Safety Report 6255503-4 (Version None)
Quarter: 2009Q2

REPORT INFORMATION
  Report Type: 
  Country: None (occurrence: None)
  Receive Date: 20090630
  Receipt Date: 20090615
  Transmission Date: 20091009
  Serious: Yes (Hospitalization)
  Sender: FDA-Public Use
  Company Number: 2009PV000050

PATIENT
  Age: 56 Year
  Sex: Female
  Weight: 85 kg

DRUGS (3)
  1. DEPOCYT [Suspect]
     Indication: LYMPHOMA
     Dosage: 50 MG;QD; INTH
     Route: 037
     Dates: start: 20090316, end: 20090522
  2. RITUXIMAB [Concomitant]
  3. VINCRISTINE [Concomitant]

REACTIONS (7)
  - BACK PAIN [None]
  - CENTRAL LINE INFECTION [None]
  - CREPITATIONS [None]
  - DEPRESSION [None]
  - SEPSIS [None]
  - STAPHYLOCOCCAL INFECTION [None]
  - THROMBOCYTOPENIA [None]
